FAERS Safety Report 9215520 (Version 4)
Quarter: 2013Q4

REPORT INFORMATION
  Report Type: Spontaneous
  Country: US (occurrence: US)
  Receive Date: 20130406
  Receipt Date: 20131203
  Transmission Date: 20140711
  Serious: Yes (Hospitalization)
  Sender: FDA-Public Use
  Company Number: US-B.I. PHARMACEUTICALS,INC./RIDGEFIELD-2013-BI-09307BP

PATIENT
  Age: 72 Year
  Sex: Male
  Weight: 78.02 kg

DRUGS (15)
  1. PRADAXA [Suspect]
     Indication: ATRIAL FIBRILLATION
     Dosage: 300 MG
     Route: 048
     Dates: start: 20110322, end: 20110419
  2. ASPIRIN [Suspect]
     Dosage: 81 MG
     Dates: end: 20110419
  3. MEPHYTON [Concomitant]
     Dosage: 5 MG
  4. XOPENEX [Concomitant]
     Route: 055
  5. SPIRIVA [Concomitant]
     Dosage: 18 MCG
  6. PROVENTIL [Concomitant]
  7. TOPROL XL [Concomitant]
     Dosage: 50 MG
     Route: 048
  8. ZESTRIL [Concomitant]
     Dosage: 40 MG
     Route: 048
  9. GLIPIZIDE [Concomitant]
     Dosage: 100 MG
     Route: 048
  10. NIASPAN ER [Concomitant]
     Dosage: 100 MG
     Route: 048
  11. LIPITOR [Concomitant]
     Dosage: 80 MG
     Route: 048
  12. ZETIA [Concomitant]
     Dosage: 10 MG
     Route: 048
  13. TRIZAC [Concomitant]
     Dosage: 360 MG
     Route: 048
  14. ADVAIR [Concomitant]
     Route: 055
  15. PRILOSEC [Concomitant]
     Dosage: 20 MG
     Route: 048

REACTIONS (1)
  - Upper gastrointestinal haemorrhage [Unknown]
